FAERS Safety Report 17141798 (Version 1)
Quarter: 2019Q4

REPORT INFORMATION
  Report Type: Spontaneous
  Country: DE (occurrence: DE)
  Receive Date: 20191211
  Receipt Date: 20191211
  Transmission Date: 20200122
  Serious: Yes (Other)
  Sender: FDA-Public Use
  Company Number: DE-MYLANLABS-2019M1101144

PATIENT
  Sex: Female

DRUGS (2)
  1. CELESTONE [Concomitant]
     Active Substance: BETAMETHASONE
     Dosage: UNK
  2. FASTJEKT [Suspect]
     Active Substance: EPINEPHRINE
     Indication: PRODUCT USED FOR UNKNOWN INDICATION
     Dosage: UNK

REACTIONS (2)
  - Device failure [Unknown]
  - Product label issue [Unknown]
